FAERS Safety Report 4313045-7 (Version None)
Quarter: 2004Q1

REPORT INFORMATION
  Report Type: 
  Country: None (occurrence: None)
  Receive Date: 20040304
  Receipt Date: 20040218
  Transmission Date: 20041129
  Serious: Yes (Other)
  Sender: FDA-Public Use
  Company Number: 2004-06704

PATIENT
  Age: 12 Year
  Sex: Male
  Weight: 35.7 kg

DRUGS (12)
  1. TENOFOVIR DF [Suspect]
     Indication: HIV INFECTION
     Dosage: 225 MG QD PO
     Route: 048
     Dates: start: 20020123
  2. LAMIVUDINE [Concomitant]
  3. STAVUDINE [Concomitant]
  4. KALETRA [Concomitant]
  5. IBUPROFEN [Concomitant]
  6. LOPERAMIDE HCL [Concomitant]
  7. FLUTICASONE PROPIONATE [Concomitant]
  8. MULTI-VITAMINS [Concomitant]
  9. AVEENO LOTION [Concomitant]
  10. CYPROHEPTADINE HCL [Concomitant]
  11. PEPTO-BISMOL [Concomitant]
  12. CONCERTA [Concomitant]

REACTIONS (3)
  - BONE DENSITY DECREASED [None]
  - FOOT FRACTURE [None]
  - OSTEOPENIA [None]
